FAERS Safety Report 6986516 (Version 18)
Quarter: 2012Q4

REPORT INFORMATION
  Report Type: 
  Country: CA (occurrence: CA)
  Receive Date: 20090505
  Receipt Date: 20121109
  Transmission Date: 20130627
  Serious: Yes (Death, Hospitalization, Other)
  Sender: FDA-Public Use
  Company Number: PHHY2009CA00682

PATIENT
  Sex: Male

DRUGS (3)
  1. SANDOSTATIN LAR [Suspect]
     Indication: NEUROENDOCRINE TUMOUR
     Dosage: 20 mg every 4 weeks
     Route: 030
     Dates: start: 20050726
  2. SANDOSTATIN LAR [Suspect]
     Indication: METASTASES TO PERITONEUM
  3. SANDOSTATIN [Suspect]
     Route: 058

REACTIONS (16)
  - Pneumonia aspiration [Fatal]
  - General physical health deterioration [Fatal]
  - Malignant neoplasm progression [Fatal]
  - Metastases to peritoneum [Fatal]
  - Gastrointestinal disorder [Fatal]
  - Fall [Unknown]
  - Pneumonia [Unknown]
  - Malaise [Unknown]
  - Respiratory disorder [Unknown]
  - Pleural effusion [Unknown]
  - Diarrhoea [Unknown]
  - Upper limb fracture [Unknown]
  - Blood pressure increased [Unknown]
  - Intestinal obstruction [Recovered/Resolved]
  - Vomiting [Unknown]
  - Body temperature decreased [Unknown]
